FAERS Safety Report 11288444 (Version 1)
Quarter: 2015Q3

REPORT INFORMATION
  Report Type: Spontaneous
  Country: US (occurrence: US)
  Receive Date: 20150721
  Receipt Date: 20150721
  Transmission Date: 20151125
  Serious: No
  Sender: FDA-Public Use
  Company Number: US-UNITED THERAPEUTICS-UNT-2015-002770

PATIENT
  Sex: Female
  Weight: 92.63 kg

DRUGS (4)
  1. REMODULIN [Suspect]
     Active Substance: TREPROSTINIL
     Indication: PULMONARY ARTERIAL HYPERTENSION
     Dosage: 0.136 ?G/KG/MIN, CONTINUING
     Route: 041
     Dates: start: 20140709
  2. REMODULIN [Suspect]
     Active Substance: TREPROSTINIL
     Dosage: 0.136 ?G/KG/MIN, CONTINUING
     Route: 041
     Dates: start: 20081007
  3. REMODULIN [Suspect]
     Active Substance: TREPROSTINIL
     Dosage: UNK
  4. REVATIO [Concomitant]
     Active Substance: SILDENAFIL CITRATE
     Indication: PRODUCT USED FOR UNKNOWN INDICATION

REACTIONS (4)
  - Dermatitis contact [Unknown]
  - Exposure via direct contact [Recovered/Resolved]
  - Skin irritation [Unknown]
  - Injection site infection [Unknown]
